FAERS Safety Report 14341426 (Version 1)
Quarter: 2018Q1

REPORT INFORMATION
  Report Type: Spontaneous
  Country: DE (occurrence: DE)
  Receive Date: 20180102
  Receipt Date: 20180102
  Transmission Date: 20180509
  Serious: Yes (Other)
  Sender: FDA-Public Use
  Company Number: DE-CONCORDIA PHARMACEUTICALS INC.-E2B_00009247

PATIENT
  Age: 79 Year
  Sex: Male
  Weight: 78 kg

DRUGS (11)
  1. PREDNISOLONE. [Suspect]
     Active Substance: PREDNISOLONE
     Indication: RHEUMATOID ARTHRITIS
     Dosage: 20 MG, QD
     Dates: start: 20171021, end: 20171027
  2. PREDNISOLONE. [Interacting]
     Active Substance: PREDNISOLONE
     Dosage: 12.5 UNK, UNK
     Dates: start: 20171104, end: 20171110
  3. PREDNISOLONE. [Interacting]
     Active Substance: PREDNISOLONE
     Dosage: 7.5 UNK, UNK
     Dates: start: 20171125
  4. BISOPROLOL RATIOPHARM [Concomitant]
     Active Substance: BISOPROLOL
     Indication: PRODUCT USED FOR UNKNOWN INDICATION
     Dosage: 2.5 MG, BID
  5. PREDNISOLONE. [Interacting]
     Active Substance: PREDNISOLONE
     Dosage: 15 UNK, UNK
     Dates: start: 20171104, end: 20171110
  6. ADENURIC [Concomitant]
     Active Substance: FEBUXOSTAT
     Indication: PRODUCT USED FOR UNKNOWN INDICATION
     Dosage: 80 MG, QD
  7. PREDNISOLONE. [Interacting]
     Active Substance: PREDNISOLONE
     Dosage: 17 MG, QD
     Dates: start: 20171020
  8. PREDNISOLONE. [Interacting]
     Active Substance: PREDNISOLONE
     Dosage: 17.5 MG, QD
     Dates: start: 20171028, end: 20171103
  9. PREDNISOLONE. [Interacting]
     Active Substance: PREDNISOLONE
     Dosage: 10 UNK, UNK
     Dates: start: 20171118, end: 20171124
  10. MARCUMAR [Suspect]
     Active Substance: PHENPROCOUMON
     Indication: ATRIAL FIBRILLATION
     Dosage: UNK
  11. CANDESARTAN. [Concomitant]
     Active Substance: CANDESARTAN
     Indication: PRODUCT USED FOR UNKNOWN INDICATION
     Dosage: 16 MG, QD

REACTIONS (3)
  - Haemorrhagic diathesis [Not Recovered/Not Resolved]
  - International normalised ratio increased [Unknown]
  - Drug interaction [Not Recovered/Not Resolved]

NARRATIVE: CASE EVENT DATE: 20171030
